FAERS Safety Report 20384829 (Version 1)
Quarter: 2022Q1

REPORT INFORMATION
  Report Type: Spontaneous
  Country: US (occurrence: US)
  Receive Date: 20220127
  Receipt Date: 20220127
  Transmission Date: 20220423
  Serious: Yes (Hospitalization, Other)
  Sender: FDA-Public Use
  Company Number: US-009507513-2201USA001919

PATIENT
  Age: 74 Year
  Sex: Male
  Weight: 121.27 kg

DRUGS (22)
  1. VERQUVO [Suspect]
     Active Substance: VERICIGUAT
     Indication: Cardiac failure
     Dosage: 10 MILLIGRAM, QD
     Route: 048
     Dates: start: 20210716, end: 20210723
  2. AMIODARONE HYDROCHLORIDE [Concomitant]
     Active Substance: AMIODARONE HYDROCHLORIDE
     Dosage: 1 DOSAGE FORM, QD
     Route: 048
     Dates: start: 20211117
  3. ELIQUIS [Concomitant]
     Active Substance: APIXABAN
     Dosage: 1 DOSAGE FORM, Q12H
     Route: 048
     Dates: start: 20211117
  4. FUROSEMIDE [Concomitant]
     Active Substance: FUROSEMIDE
     Dosage: 1 DOSAGE FORM, QD
     Route: 048
     Dates: start: 20190422
  5. CHONDROITIN;GLUCOSAMINE [Concomitant]
  6. HYDRALAZINE HCL [Concomitant]
     Active Substance: HYDRALAZINE HYDROCHLORIDE
     Dosage: 1 DOSAGE FORM, TID
     Route: 048
     Dates: start: 20211117
  7. IRON [Concomitant]
     Active Substance: IRON
     Dosage: 1 DOSAGE FORM, BID
  8. ISOSORBIDE DINITRATE [Concomitant]
     Active Substance: ISOSORBIDE DINITRATE
     Dosage: 1 DOSAGE FORM, TID
     Route: 048
     Dates: start: 20211117
  9. MECLIZINE HYDROCHLORIDE [Concomitant]
     Active Substance: MECLIZINE HYDROCHLORIDE
     Indication: Dizziness
     Dosage: 1 DOSAGE FORM, Q6H
     Route: 048
  10. METOPROLOL SUCCINATE [Concomitant]
     Active Substance: METOPROLOL SUCCINATE
     Dosage: 1 DOSAGE FORM, QD
     Route: 048
     Dates: start: 20210824
  11. VITAMINS [Concomitant]
     Active Substance: VITAMINS
     Dosage: 1 DOSAGE FORM, QD
  12. NITROSTAT [Concomitant]
     Active Substance: NITROGLYCERIN
     Indication: Chest pain
     Dosage: DISSOLVE 1 TABLET UNDER THE TONGUE AS NEEDED
     Route: 060
     Dates: start: 20160311
  13. RABEPRAZOLE [Concomitant]
     Active Substance: RABEPRAZOLE
     Dosage: 1 DOSAGE FORM, TID
     Route: 048
     Dates: start: 20210521
  14. CRESTOR [Concomitant]
     Active Substance: ROSUVASTATIN CALCIUM
     Dosage: 1 DOSAGE FORM, QD
     Route: 048
     Dates: start: 20200313
  15. SALINE NASAL MIST [Concomitant]
     Dosage: USE AS DIRECTED
     Dates: start: 20211117
  16. CIALIS [Concomitant]
     Active Substance: TADALAFIL
     Dosage: TAKE 1 TABLET 1 HOUR BEFORE ACTIVITY AS NEEDED
     Route: 048
     Dates: start: 20180412
  17. TEMAZEPAM [Concomitant]
     Active Substance: TEMAZEPAM
     Dosage: TAKE 1 CAPSULE AT BEDTIME AS NEEDED
     Route: 048
     Dates: start: 20220113
  18. TRAZODONE HCL [Concomitant]
     Active Substance: TRAZODONE HYDROCHLORIDE
     Dosage: 1 TABLET AT BEDTIME
     Route: 048
     Dates: start: 20210824
  19. TRELEGY ELLIPTA [Concomitant]
     Active Substance: FLUTICASONE FUROATE\UMECLIDINIUM BROMIDE\VILANTEROL TRIFENATATE
     Dosage: INHALE 1 PUFF DAILY
     Dates: start: 20220119
  20. VITAMIN B12 [Concomitant]
     Active Substance: CYANOCOBALAMIN
     Dosage: 1 DOSAGE FORM, QD
     Route: 048
     Dates: start: 20210824
  21. VITAMIN C [Concomitant]
     Active Substance: ASCORBIC ACID
     Dosage: 1 DOSAGE FORM, QD
  22. VITAMIN D3 [Concomitant]
     Active Substance: CHOLECALCIFEROL
     Dosage: 1 DOSAGE FORM, QD
     Route: 048
     Dates: start: 20200420

REACTIONS (14)
  - Anxiety [Recovered/Resolved]
  - Panic reaction [Recovered/Resolved]
  - Dyspnoea [Recovered/Resolved]
  - Dyspnoea exertional [Recovered/Resolved]
  - Insomnia [Recovered/Resolved]
  - Orthopnoea [Recovered/Resolved]
  - Erectile dysfunction [Unknown]
  - Hypoxia [Unknown]
  - Diverticulitis [Unknown]
  - Abdominal pain [Unknown]
  - Lung disorder [Unknown]
  - Iron deficiency anaemia [Unknown]
  - Cardiac resynchronisation therapy [Unknown]
  - Gastrooesophageal reflux disease [Unknown]

NARRATIVE: CASE EVENT DATE: 20210701
